FAERS Safety Report 5245165-7 (Version None)
Quarter: 2007Q1

REPORT INFORMATION
  Report Type: 
  Country: None (occurrence: None)
  Receive Date: 20070223
  Receipt Date: 20070214
  Transmission Date: 20070707
  Serious: Yes (Other)
  Sender: FDA-Public Use
  Company Number: US-ROCHE-473013

PATIENT
  Age: 68 Year
  Sex: Male

DRUGS (4)
  1. PEGASYS [Suspect]
     Dosage: STRENGTH REPORTED AS 180MCG/0.5ML.
     Route: 058
     Dates: start: 20060909
  2. RIBAVIRIN [Suspect]
     Dosage: ROUTE REPORTES AS ORAL.
     Route: 050
     Dates: start: 20060909, end: 20070121
  3. RIBAVIRIN [Suspect]
     Dosage: ROUTE REPORTED AS UNKNOWN.
     Route: 050
     Dates: start: 20070122
  4. DIPHENHYDRAMINE HCL [Suspect]
     Indication: RESPIRATORY TRACT CONGESTION
     Route: 048
     Dates: start: 20060615, end: 20061215

REACTIONS (13)
  - ANAEMIA [None]
  - CONSTIPATION [None]
  - COUGH [None]
  - DRY SKIN [None]
  - HAEMATOCRIT DECREASED [None]
  - HAEMOGLOBIN DECREASED [None]
  - INFLUENZA LIKE ILLNESS [None]
  - INSOMNIA [None]
  - PROSTATE EXAMINATION ABNORMAL [None]
  - RASH MACULAR [None]
  - RED BLOOD CELL COUNT DECREASED [None]
  - RESPIRATORY TRACT CONGESTION [None]
  - WHITE BLOOD CELL COUNT DECREASED [None]
